FAERS Safety Report 9507215 (Version 2)
Quarter: 2013Q4

REPORT INFORMATION
  Report Type: Spontaneous
  Country: TR (occurrence: TR)
  Receive Date: 20130909
  Receipt Date: 20131015
  Transmission Date: 20140711
  Serious: Yes (Hospitalization)
  Sender: FDA-Public Use
  Company Number: PHHY2013TR096547

PATIENT
  Age: 57 Year
  Sex: Female

DRUGS (7)
  1. ZOLEDRONATE [Suspect]
     Indication: OSTEOPOROSIS PROPHYLAXIS
     Dosage: 5 MG PER YEAR
  2. FUROSEMIDE [Suspect]
     Dosage: 40 MG, QOD (EVERY OTHER DAY)
  3. PREDNISOLONE [Concomitant]
     Dosage: 5 MG, PER DAY
  4. HYDROXYCHLOROQUINE [Concomitant]
     Dosage: 200 MG, DAILY
  5. LANSOPRAZOLE [Concomitant]
     Dosage: 30 MG, PER DAY
  6. CALCIUM [Concomitant]
     Dosage: 1200 MG, PER DAY
  7. VITAMIN D3 [Concomitant]
     Dosage: 2000 IU, PER DAY
     Route: 048

REACTIONS (8)
  - Hyponatraemia [Recovered/Resolved]
  - Hypocalcaemia [Recovered/Resolved]
  - Dyspnoea [Unknown]
  - Trousseau^s sign [Unknown]
  - Chvostek^s sign [Unknown]
  - Muscle contractions involuntary [Unknown]
  - Tetany [Unknown]
  - Hypokalaemia [Recovered/Resolved]
